FAERS Safety Report 15545717 (Version 1)
Quarter: 2018Q4

REPORT INFORMATION
  Report Type: Spontaneous
  Country: US (occurrence: US)
  Receive Date: 20181017
  Receipt Date: 20181017
  Transmission Date: 20190205
  Serious: Yes (Life-Threatening)
  Sender: FDA-Public Use
  Company Number: None

PATIENT
  Age: 50 Year
  Sex: Female
  Weight: 97.52 kg

DRUGS (5)
  1. BASAGLAR [Suspect]
     Active Substance: INSULIN GLARGINE
     Indication: DIABETES MELLITUS
     Dosage: ?          QUANTITY:45 DF DOSAGE FORM;OTHER ROUTE:INJECTION?
     Dates: start: 20171003
  2. PRAVASTATIN. [Concomitant]
     Active Substance: PRAVASTATIN
  3. MULTIVITAMIN [Concomitant]
     Active Substance: VITAMINS
  4. LISINOPRIL. [Concomitant]
     Active Substance: LISINOPRIL
  5. ASPIRIN. [Concomitant]
     Active Substance: ASPIRIN

REACTIONS (4)
  - Dyspnoea [None]
  - Urticaria [None]
  - Furuncle [None]
  - Blood glucose decreased [None]

NARRATIVE: CASE EVENT DATE: 20180823
